FAERS Safety Report 14752417 (Version 1)
Quarter: 2018Q2

REPORT INFORMATION
  Report Type: Spontaneous
  Country: US (occurrence: US)
  Receive Date: 20180412
  Receipt Date: 20180412
  Transmission Date: 20180711
  Serious: Yes (Life-Threatening, Other)
  Sender: FDA-Public Use
  Company Number: US-PFIZER INC-2017423926

PATIENT
  Age: 65 Year
  Sex: Female
  Weight: 72.56 kg

DRUGS (6)
  1. PERCOCET [Concomitant]
     Active Substance: ACETAMINOPHEN\OXYCODONE HYDROCHLORIDE
     Dosage: UNK (OXYCODONE HYDROCHLORIDE: 5MG/PARACETAMOL: 325MG)
     Route: 048
  2. DECADRON [Concomitant]
     Active Substance: DEXAMETHASONE
     Indication: PAIN
     Dosage: UNK, CYCLIC(TAKE 2 MG DAILY X5 DAYS, THEN 1MG DAILY FOR 5 DAYS)
  3. DURAGESIC [Concomitant]
     Active Substance: FENTANYL
     Dosage: UNK (APPLY 1 PATCH TO SKIN EVERY FORTY-EIGHT HOURS)
     Route: 061
  4. IBRANCE [Suspect]
     Active Substance: PALBOCICLIB
     Indication: BREAST CANCER METASTATIC
     Dosage: 125 MG, CYCLIC (21 DAYS FOLLOWED BY A 7 DAY PERIOD OF REST TO COMPLETE A 28 DAY TREATMENT CYCLE)
     Route: 048
     Dates: start: 2017, end: 20180311
  5. PRINIVIL [Concomitant]
     Active Substance: LISINOPRIL
     Dosage: 2.5 MG, 1X/DAY
     Route: 048
  6. NEXIUM [Concomitant]
     Active Substance: ESOMEPRAZOLE MAGNESIUM
     Dosage: 40 MG, UNK
     Route: 048

REACTIONS (4)
  - Blindness [Unknown]
  - Fatigue [Unknown]
  - Syncope [Recovered/Resolved]
  - Vertigo [Recovered/Resolved]

NARRATIVE: CASE EVENT DATE: 20180311
